FAERS Safety Report 7471009-9 (Version None)
Quarter: 2011Q2

REPORT INFORMATION
  Report Type: 
  Country: None (occurrence: None)
  Receive Date: 20110510
  Receipt Date: 20110508
  Transmission Date: 20111010
  Serious: Yes (Other)
  Sender: FDA-Public Use
  Company Number: US-PFIZER INC-2011098659

PATIENT
  Age: 61 Year
  Sex: Female
  Weight: 68 kg

DRUGS (5)
  1. ACETYLSALICYLIC ACID [Concomitant]
     Indication: PAIN
     Dosage: UNK
  2. LYRICA [Suspect]
     Dosage: 75 MG, UNK
     Dates: start: 20110501
  3. PREDNISONE [Concomitant]
     Indication: DERMATOMYOSITIS
     Dosage: 6 MG, UNK
     Route: 048
  4. LYRICA [Suspect]
     Indication: FIBROMYALGIA
     Dosage: 50 MG, UNK
     Route: 048
     Dates: start: 20110501, end: 20110501
  5. PLAQUENIL [Concomitant]
     Indication: DERMATOMYOSITIS
     Dosage: 200 MG, 1X/DAY
     Route: 048

REACTIONS (1)
  - VISION BLURRED [None]
